FAERS Safety Report 19080657 (Version 3)
Quarter: 2021Q3

REPORT INFORMATION
  Report Type: Report from Study
  Country: FR (occurrence: FR)
  Receive Date: 20210331
  Receipt Date: 20210712
  Transmission Date: 20211014
  Serious: Yes (Death, Hospitalization, Other)
  Sender: FDA-Public Use
  Company Number: FR-TAKEDA-2019TUS056693

PATIENT
  Sex: Male
  Weight: 65 kg

DRUGS (1)
  1. IXAZOMIB [Suspect]
     Active Substance: IXAZOMIB
     Indication: PLASMA CELL MYELOMA
     Dosage: 3 MILLIGRAM
     Route: 065
     Dates: start: 20190131, end: 20191105

REACTIONS (4)
  - Myalgia [Unknown]
  - Febrile neutropenia [Fatal]
  - Swelling [Recovering/Resolving]
  - Osteonecrosis [Unknown]

NARRATIVE: CASE EVENT DATE: 20191002
